FAERS Safety Report 12675602 (Version 1)
Quarter: 2016Q3

REPORT INFORMATION
  Report Type: Spontaneous
  Country: US (occurrence: US)
  Receive Date: 20160823
  Receipt Date: 20160823
  Transmission Date: 20161109
  Serious: No
  Sender: FDA-Public Use
  Company Number: US-JAZZ-2016-US-006352

PATIENT
  Sex: Female

DRUGS (22)
  1. XYREM [Suspect]
     Active Substance: SODIUM OXYBATE
     Dosage: DOSE ADJUSTMENTS
     Route: 048
  2. XYREM [Suspect]
     Active Substance: SODIUM OXYBATE
     Dosage: 3 G, BID
     Route: 048
     Dates: start: 201012
  3. LANTUS [Concomitant]
     Active Substance: INSULIN GLARGINE
  4. VITAMIN D [Concomitant]
     Active Substance: CHOLECALCIFEROL
  5. CITRACAL + D [Concomitant]
     Active Substance: CALCIUM CITRATE\VITAMIN D
  6. VITAMIN B12 [Concomitant]
     Active Substance: CYANOCOBALAMIN
  7. EFFEXOR [Concomitant]
     Active Substance: VENLAFAXINE HYDROCHLORIDE
  8. BLACK COHOSH [Concomitant]
     Active Substance: BLACK COHOSH
  9. NEURONTIN [Concomitant]
     Active Substance: GABAPENTIN
  10. PROTONIX [Concomitant]
     Active Substance: PANTOPRAZOLE SODIUM
  11. MIRALAX [Concomitant]
     Active Substance: POLYETHYLENE GLYCOL 3350
  12. ATENOLOL. [Concomitant]
     Active Substance: ATENOLOL
  13. IMITREX [Concomitant]
     Active Substance: SUMATRIPTAN SUCCINATE
  14. TOPAMAX [Concomitant]
     Active Substance: TOPIRAMATE
  15. COLACE [Concomitant]
     Active Substance: DOCUSATE SODIUM
  16. CENTRUM [Concomitant]
     Active Substance: VITAMINS
  17. VITAMIN D3 [Concomitant]
     Active Substance: CHOLECALCIFEROL
  18. COZAAR [Concomitant]
     Active Substance: LOSARTAN POTASSIUM
  19. DHEA [Concomitant]
     Active Substance: PRASTERONE
  20. XYREM [Suspect]
     Active Substance: SODIUM OXYBATE
     Indication: FIBROMYALGIA
     Dosage: 2.25 G, BID
     Route: 048
     Dates: start: 200603, end: 200604
  21. ACTONEL [Concomitant]
     Active Substance: RISEDRONATE SODIUM
  22. LINZESS [Concomitant]
     Active Substance: LINACLOTIDE

REACTIONS (1)
  - Glaucoma [Recovering/Resolving]

NARRATIVE: CASE EVENT DATE: 2015
